FAERS Safety Report 23147610 (Version 1)
Quarter: 2023Q4

REPORT INFORMATION
  Report Type: Spontaneous
  Country: US (occurrence: US)
  Receive Date: 20231106
  Receipt Date: 20231106
  Transmission Date: 20240109
  Serious: Yes (Other)
  Sender: FDA-Public Use
  Company Number: US-UCBSA-2023052331

PATIENT

DRUGS (1)
  1. BRIVIACT [Suspect]
     Active Substance: BRIVARACETAM
     Indication: Seizure

REACTIONS (2)
  - Seizure [Unknown]
  - Product availability issue [Unknown]
